FAERS Safety Report 17420977 (Version 1)
Quarter: 2020Q1

REPORT INFORMATION
  Report Type: Spontaneous
  Country: US (occurrence: US)
  Receive Date: 20200214
  Receipt Date: 20200214
  Transmission Date: 20200409
  Serious: No
  Sender: FDA-Public Use
  Company Number: US-THERAPEUTICSMD-2020TMD00005

PATIENT
  Sex: Female
  Weight: 46.71 kg

DRUGS (4)
  1. UNSPECIFIED VITAMINS [Concomitant]
     Active Substance: VITAMINS
  2. BIJUVA [Suspect]
     Active Substance: ESTRADIOL\PROGESTERONE
     Indication: HOT FLUSH
     Dosage: 1 CAPSULES, 1X/DAY
     Route: 048
     Dates: start: 2019
  3. BIJUVA [Suspect]
     Active Substance: ESTRADIOL\PROGESTERONE
     Indication: LIBIDO DECREASED
  4. UNSPECIFIED STATIN [Concomitant]

REACTIONS (3)
  - Unevaluable event [Not Recovered/Not Resolved]
  - Discomfort [Not Recovered/Not Resolved]
  - Drug ineffective [Not Recovered/Not Resolved]

NARRATIVE: CASE EVENT DATE: 2019
